FAERS Safety Report 5374527-2 (Version None)
Quarter: 2007Q2

REPORT INFORMATION
  Report Type: 
  Country: None (occurrence: None)
  Receive Date: 20070627
  Receipt Date: 20060524
  Transmission Date: 20071010
  Serious: Yes (Death)
  Sender: FDA-Public Use
  Company Number: 449481

PATIENT
  Age: 85 Year
  Sex: Male
  Weight: 60.8 kg

DRUGS (5)
  1. XELODA [Suspect]
     Indication: OESOPHAGEAL CARCINOMA
     Dosage: 2500 MG DAILY, 2 PER DAY; ORAL
     Route: 048
     Dates: start: 20060203, end: 20060501
  2. METHOCLOPRAMIDE             (METOCLOPRAMIDE) [Concomitant]
  3. OMEPRAZOLE [Concomitant]
  4. LEVOTHYROXINE SODIUM [Concomitant]
  5. ASPIRIN [Concomitant]

REACTIONS (1)
  - OESOPHAGEAL CARCINOMA [None]
